FAERS Safety Report 5530696-2 (Version None)
Quarter: 2007Q4

REPORT INFORMATION
  Report Type: 
  Country: None (occurrence: None)
  Receive Date: 20071128
  Receipt Date: 20071128
  Transmission Date: 20080405
  Serious: Yes (Life-Threatening)
  Sender: FDA-Public Use
  Company Number: None

PATIENT
  Age: 31 Year
  Sex: Male
  Weight: 91 kg

DRUGS (11)
  1. HALDOL [Suspect]
     Indication: AGITATION
     Dosage: 5 MG IV Q 4 PRN
     Route: 042
     Dates: start: 20071005
  2. HALDOL [Suspect]
     Indication: AGITATION
     Dosage: 5 MG IV Q 4 PRN
     Route: 042
     Dates: start: 20071007
  3. QUETIAPINE FUMARATE [Suspect]
     Dosage: 50 MG PO QD
     Route: 048
     Dates: start: 20071005, end: 20071008
  4. TPN [Concomitant]
  5. ENOXAPARIN SODIUM [Concomitant]
  6. SUCRALFATE [Concomitant]
  7. POTASSIUM CHLORIDE [Concomitant]
  8. HYDROMORPHONE HCL [Concomitant]
  9. RANITIDINE HCL [Concomitant]
  10. ZOSYN [Concomitant]
  11. SOD. BICARB [Concomitant]

REACTIONS (2)
  - BODY TEMPERATURE FLUCTUATION [None]
  - HYPOKINESIA [None]
